FAERS Safety Report 8250458-5 (Version None)
Quarter: 2012Q2

REPORT INFORMATION
  Report Type: 
  Country: None (occurrence: None)
  Receive Date: 20120402
  Receipt Date: 20120402
  Transmission Date: 20120825
  Serious: Yes (Other)
  Sender: FDA-Public Use
  Company Number: None

PATIENT
  Sex: Female
  Weight: 106.59 kg

DRUGS (1)
  1. PERFOROMIST [Suspect]
     Indication: ASTHMA
     Dosage: 1 VIAL IN NEBULIZER CUP
     Route: 055
     Dates: start: 20120328, end: 20120329

REACTIONS (6)
  - DISTURBANCE IN ATTENTION [None]
  - ANXIETY [None]
  - BLOOD PRESSURE INCREASED [None]
  - CRYING [None]
  - DIARRHOEA [None]
  - SOMNOLENCE [None]
